FAERS Safety Report 12201157 (Version 1)
Quarter: 2016Q1

REPORT INFORMATION
  Report Type: Spontaneous
  Country: US (occurrence: US)
  Receive Date: 20160322
  Receipt Date: 20160322
  Transmission Date: 20160526
  Serious: No
  Sender: FDA-Public Use
  Company Number: US-SA-2015SA099677

PATIENT
  Age: 68 Year
  Sex: Female

DRUGS (1)
  1. NASACORT ALLERGY 24HR [Suspect]
     Active Substance: TRIAMCINOLONE ACETONIDE
     Indication: UPPER-AIRWAY COUGH SYNDROME
     Dosage: 1 SPRAY/NOSTRIL DAILY?STARTED THREE WEEKS AGO, OFF AND ON.
     Route: 045
     Dates: start: 2015, end: 2015

REACTIONS (10)
  - Headache [Recovered/Resolved]
  - Oropharyngeal pain [Unknown]
  - Inflammation [Unknown]
  - Tongue disorder [Unknown]
  - Condition aggravated [Unknown]
  - Erythema [Unknown]
  - Pharyngeal disorder [Unknown]
  - Pharyngeal oedema [Unknown]
  - Upper-airway cough syndrome [Unknown]
  - Drug hypersensitivity [Unknown]
